FAERS Safety Report 18455713 (Version 2)
Quarter: 2020Q4

REPORT INFORMATION
  Report Type: Spontaneous
  Country: FI (occurrence: FI)
  Receive Date: 20201103
  Receipt Date: 20201210
  Transmission Date: 20210114
  Serious: Yes (Other)
  Sender: FDA-Public Use
  Company Number: FI-UCBSA-2020043003

PATIENT
  Sex: Female

DRUGS (3)
  1. KEPPRA [Suspect]
     Active Substance: LEVETIRACETAM
     Dosage: INDEPENDENTLY DECREASED THE DOSE
     Dates: end: 202011
  2. KEPPRA [Suspect]
     Active Substance: LEVETIRACETAM
     Indication: OFF LABEL USE
     Dosage: 1000 MILLIGRAM, 2X/DAY (BID)
     Dates: start: 202006
  3. KEPPRA [Suspect]
     Active Substance: LEVETIRACETAM
     Indication: PROPHYLAXIS
     Dosage: 500 MILLIGRAM, 2X/DAY (BID)
     Dates: start: 2015, end: 2020

REACTIONS (5)
  - Dermatitis allergic [Recovered/Resolved]
  - Product use issue [Unknown]
  - Metastases to central nervous system [Unknown]
  - Breast cancer [Unknown]
  - Off label use [Unknown]

NARRATIVE: CASE EVENT DATE: 2015
